FAERS Safety Report 5484137-4 (Version None)
Quarter: 2007Q4

REPORT INFORMATION
  Report Type: 
  Country: None (occurrence: None)
  Receive Date: 20071012
  Receipt Date: 20071009
  Transmission Date: 20080405
  Serious: Yes (Death, Hospitalization)
  Sender: FDA-Public Use
  Company Number: ZA-BRISTOL-MYERS SQUIBB COMPANY-13888581

PATIENT
  Age: 65 Year
  Sex: Male
  Weight: 81 kg

DRUGS (11)
  1. CARBOPLATIN [Suspect]
     Indication: SMALL CELL LUNG CANCER STAGE UNSPECIFIED
     Route: 042
     Dates: start: 20070417, end: 20070731
  2. ETOPOSIDE [Suspect]
     Indication: SMALL CELL LUNG CANCER STAGE UNSPECIFIED
     Route: 042
     Dates: start: 20070417, end: 20070731
  3. MORPHINE [Concomitant]
     Indication: PAIN
     Dates: start: 20070402
  4. SORBITOL [Concomitant]
     Indication: CONSTIPATION PROPHYLAXIS
     Dates: start: 20070402
  5. ACETAMINOPHEN W/ CODEINE [Concomitant]
     Dates: start: 20060127
  6. AMITRIPTYLINE HCL [Concomitant]
     Indication: INSOMNIA
     Dates: start: 20070402
  7. ANDOLEX [Concomitant]
  8. HALOPERIDOL [Concomitant]
     Indication: CONFUSIONAL STATE
     Dates: start: 20070601
  9. THIAMINE [Concomitant]
  10. LACTULOSE [Concomitant]
  11. PHENYTOIN [Concomitant]

REACTIONS (2)
  - CONVULSION [None]
  - MALIGNANT NEOPLASM PROGRESSION [None]
